FAERS Safety Report 17961659 (Version 2)
Quarter: 2020Q3

REPORT INFORMATION
  Report Type: Spontaneous
  Country: US (occurrence: US)
  Receive Date: 20200629
  Receipt Date: 20200709
  Transmission Date: 20201103
  Serious: Yes (Hospitalization)
  Sender: FDA-Public Use
  Company Number: US-FRESENIUS MEDICAL CARE RENAL THERAPIES GROUP-FMC-2006-000712

PATIENT
  Age: 71 Year
  Sex: Male
  Weight: 68.5 kg

DRUGS (1)
  1. DELFLEX [Suspect]
     Active Substance: CALCIUM CHLORIDE\DEXTROSE\MAGNESIUM CHLORIDE\SODIUM CHLORIDE\SODIUM LACTATE
     Indication: END STAGE RENAL DISEASE
     Dosage: FILLS 5; FILL VOLUME 2500 ML; LAST FILL VOLUME 1000ML; TOTAL VOLUME 11000 ML; TOTAL SLEEP TIME 12 HR
     Route: 033

REACTIONS (1)
  - Fluid overload [Unknown]
